FAERS Safety Report 20955402 (Version 1)
Quarter: 2022Q2

REPORT INFORMATION
  Report Type: Report from Study
  Country: ES (occurrence: ES)
  Receive Date: 20220614
  Receipt Date: 20220614
  Transmission Date: 20220721
  Serious: Yes (Death, Congenital Anomaly)
  Sender: FDA-Public Use
  Company Number: ES-CURIUM-2022000319

PATIENT
  Sex: Male
  Weight: 2.2 kg

DRUGS (1)
  1. SODIUM IODIDE I 131 [Suspect]
     Active Substance: SODIUM IODIDE I-131
     Indication: Product used for unknown indication
     Route: 050

REACTIONS (1)
  - Trisomy 18 [Fatal]
